FAERS Safety Report 9472460 (Version 3)
Quarter: 2013Q4

REPORT INFORMATION
  Report Type: Spontaneous
  Country: JP (occurrence: JP)
  Receive Date: 20130823
  Receipt Date: 20131001
  Transmission Date: 20140711
  Serious: No
  Sender: FDA-Public Use
  Company Number: JP-UCBSA-095995

PATIENT
  Age: 86 Year
  Sex: Female

DRUGS (10)
  1. E KEPPRA [Suspect]
     Indication: EPILEPSY
     Route: 048
     Dates: start: 20130511, end: 20130727
  2. EXCEGRAN [Concomitant]
     Route: 048
  3. DIOVAN [Concomitant]
     Dosage: 40 MG
     Route: 048
  4. AMLODIPINE [Concomitant]
     Dosage: 2.5 MG
     Route: 048
  5. REFLEX [Concomitant]
     Dosage: 15 MG
     Route: 048
  6. SHAKUYAKUKANZOTO [Concomitant]
     Dosage: 2.5 G
     Route: 048
  7. LANSOPRAZOLE-OD [Concomitant]
     Dosage: 15 MG
     Route: 048
  8. EVISTA [Concomitant]
     Dosage: 60 MG
     Route: 048
  9. EPADEL [Concomitant]
     Dosage: 600 MG
     Route: 048
  10. DEPAS [Concomitant]
     Dosage: 0.5 MG
     Route: 048

REACTIONS (2)
  - White blood cell count decreased [Recovered/Resolved]
  - Platelet count decreased [Recovered/Resolved]
